FAERS Safety Report 10061005 (Version 2)
Quarter: 2014Q2

REPORT INFORMATION
  Report Type: Spontaneous
  Country: FR (occurrence: FR)
  Receive Date: 20140405
  Receipt Date: 20140417
  Transmission Date: 20141212
  Serious: Yes (Hospitalization)
  Sender: FDA-Public Use
  Company Number: FR-ROCHE-1376343

PATIENT
  Age: 69 Year
  Sex: Male

DRUGS (28)
  1. AVASTIN [Suspect]
     Indication: COLORECTAL CANCER METASTATIC
     Dosage: 8 CYCLES
     Route: 042
     Dates: start: 201209, end: 201302
  2. AVASTIN [Suspect]
     Dosage: 6 CYCLES
     Route: 042
     Dates: start: 201303, end: 201306
  3. AVASTIN [Suspect]
     Dosage: 10 CYCLES
     Route: 042
     Dates: start: 201307, end: 201312
  4. AVASTIN [Suspect]
     Dosage: 18TH CYCLE
     Route: 042
     Dates: start: 20140213, end: 20140213
  5. AVASTIN [Suspect]
     Route: 042
     Dates: start: 201401
  6. AVASTIN [Suspect]
     Route: 042
     Dates: start: 20140306
  7. ELOXATINE [Suspect]
     Indication: COLORECTAL CANCER METASTATIC
     Dosage: 18TH CYCLE
     Route: 042
     Dates: start: 20140213, end: 20140213
  8. ELOXATINE [Suspect]
     Dosage: 8 CYCLES
     Route: 042
     Dates: start: 201209, end: 201302
  9. ELOXATINE [Suspect]
     Dosage: 8 CYCLES
     Route: 042
     Dates: start: 201307, end: 201312
  10. ELOXATINE [Suspect]
     Dosage: 8 CYCLES
     Route: 042
     Dates: start: 201401
  11. SOLU-MEDROL [Suspect]
     Indication: PROPHYLAXIS
     Route: 042
     Dates: start: 20140213, end: 20140213
  12. SOLU-MEDROL [Suspect]
     Indication: VOMITING
  13. ELVORINE [Concomitant]
     Indication: PROPHYLAXIS
     Dosage: 8 CYCLES
     Route: 042
     Dates: start: 201209, end: 201302
  14. ELVORINE [Concomitant]
     Dosage: 18TH CYCLE
     Route: 042
     Dates: start: 20140213, end: 20140213
  15. ELVORINE [Concomitant]
     Dosage: 8 CYCLES
     Route: 042
     Dates: start: 201307, end: 201312
  16. ELVORINE [Concomitant]
     Dosage: 8 CYCLES
     Route: 042
     Dates: start: 201401
  17. FLUOROURACILE [Concomitant]
     Indication: COLORECTAL CANCER METASTATIC
     Dosage: 8 CYCLES
     Route: 042
     Dates: start: 201209, end: 201302
  18. FLUOROURACILE [Concomitant]
     Dosage: 18TH CYCLE
     Route: 042
     Dates: start: 20140213, end: 20140213
  19. FLUOROURACILE [Concomitant]
     Dosage: 6 CYCLES
     Route: 042
     Dates: start: 201303, end: 201306
  20. FLUOROURACILE [Concomitant]
     Dosage: 10 CYCLES
     Route: 042
     Dates: start: 201307, end: 201312
  21. FLUOROURACILE [Concomitant]
     Dosage: 10 CYCLES
     Route: 042
     Dates: start: 201401
  22. FLUOROURACILE [Concomitant]
     Route: 042
     Dates: start: 20140306
  23. ZOPHREN [Concomitant]
     Dosage: 8 CYCLES
     Route: 065
     Dates: start: 201209, end: 201302
  24. ZOPHREN [Concomitant]
     Route: 065
     Dates: start: 201303, end: 201312
  25. EMEND [Concomitant]
     Dosage: 8 CYCLES
     Route: 065
     Dates: start: 201209, end: 201302
  26. EMEND [Concomitant]
     Route: 065
     Dates: start: 201303, end: 201312
  27. KYTRIL [Concomitant]
  28. PRIMPERAN [Concomitant]
     Indication: PREMEDICATION

REACTIONS (4)
  - Chills [Recovered/Resolved]
  - Epistaxis [Recovered/Resolved]
  - Thrombocytopenic purpura [Recovered/Resolved]
  - Thrombocytopenia [Recovered/Resolved]
